FAERS Safety Report 10461279 (Version 1)
Quarter: 2014Q3

REPORT INFORMATION
  Report Type: Spontaneous
  Country: TR (occurrence: None)
  Receive Date: 20140916
  Receipt Date: 20140916
  Transmission Date: 20150326
  Serious: Yes (Life-Threatening, Other)
  Sender: FDA-Public Use
  Company Number: 2014JUB00127

PATIENT
  Sex: Female

DRUGS (7)
  1. MYCOPHENOLATE MOFETIL. [Concomitant]
     Active Substance: MYCOPHENOLATE MOFETIL
  2. ENALAPRIL (ENALAPRIL) [Suspect]
     Active Substance: ENALAPRIL
     Indication: HYPERTENSION
     Route: 048
  3. CYCLOSPORIN [Concomitant]
     Active Substance: CYCLOSPORINE
  4. LOSARTAN (LOSARTAN) UNKNOWN [Suspect]
     Active Substance: LOSARTAN
     Indication: PROTEINURIA
  5. ENALAPRIL (ENALAPRIL) [Suspect]
     Active Substance: ENALAPRIL
     Indication: PROTEINURIA
     Route: 048
  6. LOSARTAN (LOSARTAN) UNKNOWN [Suspect]
     Active Substance: LOSARTAN
     Indication: HYPERTENSION
  7. PREDNISOLONE. [Concomitant]
     Active Substance: PREDNISOLONE

REACTIONS (2)
  - Metabolic acidosis [None]
  - Hyperkalaemia [None]
